FAERS Safety Report 18436375 (Version 2)
Quarter: 2020Q4

REPORT INFORMATION
  Report Type: Spontaneous
  Country: US (occurrence: US)
  Receive Date: 20201028
  Receipt Date: 20201104
  Transmission Date: 20210114
  Serious: No
  Sender: FDA-Public Use
  Company Number: US-PFIZER INC-2020414410

PATIENT
  Sex: Male

DRUGS (2)
  1. LASIX [Suspect]
     Active Substance: FUROSEMIDE
     Dosage: UNK
  2. FUROSEMIDE. [Suspect]
     Active Substance: FUROSEMIDE
     Dosage: UNK

REACTIONS (6)
  - Abdominal discomfort [Unknown]
  - Testicular pain [Unknown]
  - Hernia [Unknown]
  - Dysuria [Unknown]
  - Gastrointestinal pain [Unknown]
  - Eating disorder [Unknown]
